FAERS Safety Report 7556925-1 (Version None)
Quarter: 2011Q2

REPORT INFORMATION
  Report Type: 
  Country: None (occurrence: None)
  Receive Date: 20110620
  Receipt Date: 20110606
  Transmission Date: 20111010
  Serious: Yes (Other)
  Sender: FDA-Public Use
  Company Number: PHHY2011CA50046

PATIENT
  Sex: Female

DRUGS (1)
  1. ZOLEDRONIC ACID [Suspect]
     Indication: OSTEOPOROSIS
     Dosage: 5 MG,
     Route: 042
     Dates: start: 20101123

REACTIONS (6)
  - PAIN IN EXTREMITY [None]
  - FAECES HARD [None]
  - GASTROINTESTINAL DISORDER [None]
  - CONSTIPATION [None]
  - VISUAL ACUITY REDUCED [None]
  - ARTHRALGIA [None]
